FAERS Safety Report 9266001 (Version 1)
Quarter: 2013Q2

REPORT INFORMATION
  Report Type: Spontaneous
  Country: US (occurrence: US)
  Receive Date: 20130501
  Receipt Date: 20130501
  Transmission Date: 20140414
  Serious: No
  Sender: FDA-Public Use
  Company Number: US-009507513-1304USA017471

PATIENT
  Sex: Female

DRUGS (2)
  1. NASONEX [Suspect]
     Indication: RHINITIS ALLERGIC
     Dosage: 2 SPRAYS IN EACH NOSTRIL TWICE DAILY
     Route: 045
     Dates: start: 2011, end: 20130429
  2. SYNTHROID [Concomitant]

REACTIONS (2)
  - Blister [Not Recovered/Not Resolved]
  - Inappropriate schedule of drug administration [Unknown]
